FAERS Safety Report 5942441-7 (Version None)
Quarter: 2008Q4

REPORT INFORMATION
  Report Type: 
  Country: None (occurrence: None)
  Receive Date: 20081105
  Receipt Date: 20081027
  Transmission Date: 20090506
  Serious: Yes (Hospitalization)
  Sender: FDA-Public Use
  Company Number: FR-PFIZER INC-2008067679

PATIENT
  Sex: Male
  Weight: 100 kg

DRUGS (2)
  1. CHANTIX [Suspect]
     Route: 048
  2. PREDNISOLONE [Suspect]
     Route: 048
     Dates: start: 20071201, end: 20071201

REACTIONS (1)
  - TENDON RUPTURE [None]
